FAERS Safety Report 18612644 (Version 2)
Quarter: 2022Q1

REPORT INFORMATION
  Report Type: Spontaneous
  Country: CA (occurrence: CA)
  Receive Date: 20201214
  Receipt Date: 20220302
  Transmission Date: 20220424
  Serious: Yes (Hospitalization, Other)
  Sender: FDA-Public Use
  Company Number: CA-BAYER-2020-267965

PATIENT
  Age: 46 Year
  Sex: Female

DRUGS (14)
  1. ALEVE [Suspect]
     Active Substance: NAPROXEN SODIUM
     Indication: Product use in unapproved indication
  2. ACTEMRA [Suspect]
     Active Substance: TOCILIZUMAB
     Indication: Still^s disease
     Dosage: 44 MG
     Route: 042
  3. ALLEGRA [FEXOFENADINE HYDROCHLORIDE] [Concomitant]
     Dosage: 1 DF, QD
  4. CALCIUM CARBONATE [Concomitant]
     Active Substance: CALCIUM CARBONATE
  5. CELEBREX [Concomitant]
     Active Substance: CELECOXIB
  6. CLARITHROMYCIN [Suspect]
     Active Substance: CLARITHROMYCIN
     Indication: Urinary tract infection
  7. CLINDAMYCIN HYDROCHLORIDE [Suspect]
     Active Substance: CLINDAMYCIN HYDROCHLORIDE
     Indication: Cellulitis
  8. CODEINE [Suspect]
     Active Substance: CODEINE
     Indication: Product use in unapproved indication
  9. COLCHICINE [Suspect]
     Active Substance: COLCHICINE
  10. CYMBALTA [Concomitant]
     Active Substance: DULOXETINE HYDROCHLORIDE
  11. DOCONEXENT [Concomitant]
     Active Substance: DOCONEXENT
  12. EBASTINE [Concomitant]
     Active Substance: EBASTINE
  13. PREDNISONE [Suspect]
     Active Substance: PREDNISONE
  14. RISEDRONATE SODIUM [Concomitant]
     Active Substance: RISEDRONATE SODIUM

REACTIONS (62)
  - Immunodeficiency [None]
  - Abdominal discomfort [None]
  - Abdominal tenderness [None]
  - Acarodermatitis [None]
  - Appetite disorder [None]
  - Arthropathy [None]
  - Axillary pain [None]
  - Cellulitis [None]
  - Chest pain [None]
  - Chills [None]
  - Drug hypersensitivity [None]
  - Erythema [None]
  - Eye discharge [None]
  - Eye irritation [None]
  - Eye pain [None]
  - Hypersensitivity [None]
  - Joint range of motion decreased [None]
  - Lymphadenopathy [None]
  - Musculoskeletal discomfort [None]
  - Musculoskeletal stiffness [None]
  - Nasopharyngitis [None]
  - Nausea [None]
  - Ocular hyperaemia [None]
  - Off label use [None]
  - Oral herpes [None]
  - Pain [None]
  - Pain in extremity [None]
  - Paraesthesia [None]
  - Peau d^orange [None]
  - Pericarditis [None]
  - Pleural effusion [None]
  - Pleurisy [None]
  - Pruritus [None]
  - Pyrexia [None]
  - Rash [None]
  - Scab [None]
  - Seasonal allergy [None]
  - Sinus congestion [None]
  - Sinusitis [None]
  - Skin disorder [None]
  - Swelling [None]
  - Tendon rupture [None]
  - Toothache [None]
  - Upper respiratory tract infection [None]
  - Urinary tract infection [None]
  - Urticaria [None]
  - Weight fluctuation [None]
  - Weight increased [None]
  - White blood cells urine positive [None]
  - Abdominal distension [None]
  - Injection site reaction [Not Recovered/Not Resolved]
  - Arthralgia [Not Recovered/Not Resolved]
  - Body temperature increased [Not Recovered/Not Resolved]
  - Bone erosion [Not Recovered/Not Resolved]
  - Chronic spontaneous urticaria [Not Recovered/Not Resolved]
  - Eczema [Not Recovered/Not Resolved]
  - Hand deformity [Not Recovered/Not Resolved]
  - Fatigue [Not Recovered/Not Resolved]
  - Productive cough [Not Recovered/Not Resolved]
  - Multiple sclerosis [Not Recovered/Not Resolved]
  - Nasal congestion [Not Recovered/Not Resolved]
  - Paranasal sinus discomfort [Not Recovered/Not Resolved]
